APPROVED DRUG PRODUCT: DOXORUBICIN HYDROCHLORIDE
Active Ingredient: DOXORUBICIN HYDROCHLORIDE
Strength: 10MG/VIAL
Dosage Form/Route: INJECTABLE;INJECTION
Application: A063097 | Product #001
Applicant: PHARMACHEMIE BV
Approved: May 21, 1990 | RLD: No | RS: No | Type: DISCN